FAERS Safety Report 15824983 (Version 1)
Quarter: 2019Q1

REPORT INFORMATION
  Report Type: Spontaneous
  Country: JP (occurrence: JP)
  Receive Date: 20190115
  Receipt Date: 20190115
  Transmission Date: 20190417
  Serious: Yes (Other)
  Sender: FDA-Public Use
  Company Number: JP-BIOGEN-2019BI00680779

PATIENT
  Age: 5 Month
  Sex: Male
  Weight: 6.52 kg

DRUGS (2)
  1. SPINRAZA [Suspect]
     Active Substance: NUSINERSEN
     Dosage: MAINTENANCE ADMINISTRATION
     Route: 037
  2. SPINRAZA [Suspect]
     Active Substance: NUSINERSEN
     Indication: SPINAL MUSCULAR ATROPHY
     Dosage: LOADING DOSE ADMINISTRATIONS WERE PERFORMED AT WEEK  0, 2, 4 AND 9.
     Route: 037

REACTIONS (7)
  - Obstructive airways disorder [Unknown]
  - Pneumonia aspiration [Unknown]
  - Pneumonia [Unknown]
  - Oxygen saturation decreased [Unknown]
  - Aspiration [Unknown]
  - Productive cough [Unknown]
  - Gastrooesophageal reflux disease [Unknown]
